FAERS Safety Report 8553034-X (Version None)
Quarter: 2012Q3

REPORT INFORMATION
  Report Type: 
  Country: None (occurrence: None)
  Receive Date: 20120731
  Receipt Date: 20110809
  Transmission Date: 20120928
  Serious: Yes (Hospitalization, Other)
  Sender: FDA-Public Use
  Company Number: US-BAYER-201023249NA

PATIENT
  Age: 25 Year
  Sex: Female
  Weight: 68.027 kg

DRUGS (5)
  1. YAZ [Suspect]
     Indication: CONTRACEPTION
     Dosage: UNK UNK, QD
     Route: 048
     Dates: start: 20080701, end: 20090701
  2. YASMIN [Suspect]
     Route: 048
     Dates: start: 20080701, end: 20090701
  3. MIDRIN [Concomitant]
  4. BISACODYL [Concomitant]
  5. GUAIFENESIN W/DEXTROMETHORPHAN [Concomitant]

REACTIONS (3)
  - EYE PAIN [None]
  - INTRACRANIAL VENOUS SINUS THROMBOSIS [None]
  - CEREBROVASCULAR ACCIDENT [None]
